FAERS Safety Report 4799291-7 (Version None)
Quarter: 2005Q4

REPORT INFORMATION
  Report Type: 
  Country: None (occurrence: None)
  Receive Date: 20051014
  Receipt Date: 20051004
  Transmission Date: 20060501
  Serious: Yes (Hospitalization)
  Sender: FDA-Public Use
  Company Number: US-MERCK-0510USA02533

PATIENT
  Age: 50 Year
  Sex: Female
  Weight: 114 kg

DRUGS (10)
  1. VIOXX [Suspect]
     Indication: ARTHRITIS
     Route: 048
     Dates: start: 20020901, end: 20030501
  2. VIOXX [Suspect]
     Route: 048
     Dates: start: 20020901, end: 20030501
  3. PREVACID [Concomitant]
     Route: 065
  4. HYDREA [Concomitant]
     Route: 065
  5. ALPRAZOLAM [Concomitant]
     Route: 065
  6. LEXAPRO [Concomitant]
     Route: 065
  7. PREMARIN [Concomitant]
     Route: 065
  8. ZYRTEC [Concomitant]
     Route: 065
  9. ADVAIR DISKUS 100/50 [Concomitant]
     Route: 065
  10. DILTIAZEM MALATE [Concomitant]
     Route: 065

REACTIONS (4)
  - CHRONIC OBSTRUCTIVE PULMONARY DISEASE [None]
  - CORONARY ARTERY DISEASE [None]
  - LEUKAEMIA [None]
  - MYOCARDIAL INFARCTION [None]
